FAERS Safety Report 6765326-5 (Version None)
Quarter: 2010Q2

REPORT INFORMATION
  Report Type: 
  Country: None (occurrence: None)
  Receive Date: 20100610
  Receipt Date: 20100610
  Transmission Date: 20101027
  Serious: Yes (Life-Threatening, Hospitalization)
  Sender: FDA-Public Use
  Company Number: None

PATIENT
  Sex: Female
  Weight: 62.7 kg

DRUGS (2)
  1. BENICAR HCT [Suspect]
     Indication: HYPERTENSION
     Dosage: 40/25 DDAILY ORALLY
     Route: 048
     Dates: start: 20060501, end: 20090219
  2. BENICAR HCT [Suspect]
     Indication: HYPERTENSION
     Dosage: 40/25 DDAILY ORALLY
     Route: 048
     Dates: start: 20090330, end: 20090515

REACTIONS (2)
  - DIARRHOEA [None]
  - UNEVALUABLE EVENT [None]
